FAERS Safety Report 22741755 (Version 2)
Quarter: 2023Q4

REPORT INFORMATION
  Report Type: Spontaneous
  Country: US (occurrence: US)
  Receive Date: 20230724
  Receipt Date: 20231025
  Transmission Date: 20240110
  Serious: No
  Sender: FDA-Public Use
  Company Number: US-HISAMITSU PHARMACEUTICAL CO., INC.-2023-NOV-US000702

PATIENT
  Sex: Female

DRUGS (3)
  1. SECUADO [Suspect]
     Active Substance: ASENAPINE
     Indication: Bipolar disorder
     Dosage: 3.8 MG, UNK
     Route: 062
  2. SECUADO [Suspect]
     Active Substance: ASENAPINE
     Indication: Tachyphrenia
  3. SECUADO [Suspect]
     Active Substance: ASENAPINE
     Indication: Off label use

REACTIONS (5)
  - Device difficult to use [Not Recovered/Not Resolved]
  - Product administration error [Not Recovered/Not Resolved]
  - Product quality issue [Not Recovered/Not Resolved]
  - Off label use [Not Recovered/Not Resolved]
  - No adverse event [Unknown]

NARRATIVE: CASE EVENT DATE: 20230101
